FAERS Safety Report 6491692-4 (Version None)
Quarter: 2009Q4

REPORT INFORMATION
  Report Type: 
  Country: None (occurrence: None)
  Receive Date: 20091211
  Receipt Date: 20091207
  Transmission Date: 20100525
  Serious: Yes (Life-Threatening)
  Sender: FDA-Public Use
  Company Number: JP-ROCHE-666574

PATIENT
  Sex: Female
  Weight: 53 kg

DRUGS (5)
  1. AVASTIN [Suspect]
     Indication: COLON CANCER METASTATIC
     Route: 041
     Dates: start: 20090728, end: 20090728
  2. AVASTIN [Suspect]
     Route: 041
     Dates: start: 20090827, end: 20090917
  3. FLUOROURACIL [Suspect]
     Indication: COLON CANCER METASTATIC
     Route: 040
     Dates: start: 20090709, end: 20091105
  4. FLUOROURACIL [Suspect]
     Route: 040
     Dates: start: 20090709, end: 20091105
  5. LEVOFOLINATE [Concomitant]
     Route: 041
     Dates: start: 20090709, end: 20091105

REACTIONS (2)
  - SUPRAVENTRICULAR EXTRASYSTOLES [None]
  - VENTRICULAR EXTRASYSTOLES [None]
